FAERS Safety Report 5869386-5 (Version None)
Quarter: 2008Q3

REPORT INFORMATION
  Report Type: 
  Country: None (occurrence: None)
  Receive Date: 20080903
  Receipt Date: 20080825
  Transmission Date: 20090109
  Serious: No
  Sender: FDA-Public Use
  Company Number: US-BOEHRINGER INGELHEIM GMBH, GERMANY-2008-BP-13569BP

PATIENT
  Sex: Male

DRUGS (3)
  1. FLOMAX [Suspect]
     Indication: BENIGN PROSTATIC HYPERPLASIA
     Route: 048
  2. ZANTAC [Suspect]
     Indication: GASTRIC DISORDER
  3. NEXIUM [Suspect]
     Indication: GASTRIC DISORDER

REACTIONS (1)
  - DRUG EFFECT DECREASED [None]
